FAERS Safety Report 15022678 (Version 1)
Quarter: 2018Q2

REPORT INFORMATION
  Report Type: Spontaneous
  Country: US (occurrence: US)
  Receive Date: 20180618
  Receipt Date: 20180618
  Transmission Date: 20180711
  Serious: Yes (Other)
  Sender: FDA-Public Use
  Company Number: US-PFIZER INC-2018241971

PATIENT
  Age: 65 Year
  Sex: Female
  Weight: 119 kg

DRUGS (1)
  1. XELJANZ XR [Suspect]
     Active Substance: TOFACITINIB CITRATE
     Dosage: 11 MG, DAILY
     Route: 048
     Dates: start: 2016, end: 2017

REACTIONS (6)
  - Body height decreased [Unknown]
  - Weight increased [Unknown]
  - Osteoporosis [Unknown]
  - Hip fracture [Unknown]
  - Osteonecrosis [Unknown]
  - Gait disturbance [Unknown]
